FAERS Safety Report 6625666-7 (Version None)
Quarter: 2010Q1

REPORT INFORMATION
  Report Type: 
  Country: None (occurrence: None)
  Receive Date: 20100310
  Receipt Date: 20100301
  Transmission Date: 20100710
  Serious: Yes (Other)
  Sender: FDA-Public Use
  Company Number: US-TEVA-226506USA

PATIENT
  Sex: Male

DRUGS (1)
  1. DACARBAZINE 200 MG/20 ML 500MG/50 ML [Suspect]
     Indication: MALIGNANT MELANOMA
     Dates: start: 20040101, end: 20070101

REACTIONS (1)
  - ACUTE MYELOID LEUKAEMIA [None]
